FAERS Safety Report 10248005 (Version 3)
Quarter: 2014Q3

REPORT INFORMATION
  Report Type: Spontaneous
  Country: JP (occurrence: JP)
  Receive Date: 20140619
  Receipt Date: 20140904
  Transmission Date: 20150326
  Serious: Yes (Hospitalization)
  Sender: FDA-Public Use
  Company Number: PHHY2014JP075402

PATIENT
  Age: 73 Year
  Sex: Female

DRUGS (3)
  1. PREDOPA//DOPAMINE HYDROCHLORIDE [Concomitant]
     Dosage: 3 ML/ HR
     Dates: start: 20140319
  2. CO-DIOVAN [Suspect]
     Active Substance: HYDROCHLOROTHIAZIDE\VALSARTAN
     Indication: HYPERTENSION
     Dosage: 1 DF, DAILY
     Route: 048
     Dates: end: 20140320
  3. HARTMANN                           /00490001/ [Concomitant]
     Dosage: 130 MEQ, UNK
     Dates: start: 20140320

REACTIONS (5)
  - Hyponatraemia [Recovered/Resolved]
  - Depressed level of consciousness [Recovered/Resolved]
  - Headache [Unknown]
  - Malaise [Unknown]
  - Thirst [Unknown]

NARRATIVE: CASE EVENT DATE: 20140310
